FAERS Safety Report 19910017 (Version 2)
Quarter: 2025Q3

REPORT INFORMATION
  Report Type: Report from Study
  Country: IN (occurrence: IN)
  Receive Date: 20211003
  Receipt Date: 20250730
  Transmission Date: 20251021
  Serious: Yes (Other)
  Sender: NOVARTIS
  Company Number: IN-NOVARTISPH-NVSC2021IN221902

PATIENT
  Age: 37 Year
  Sex: Female

DRUGS (2)
  1. TASIGNA [Suspect]
     Active Substance: NILOTINIB
     Indication: Chronic myeloid leukaemia
     Dosage: 400 MG, BID
     Route: 048
     Dates: start: 20210827, end: 20210916
  2. TASIGNA [Suspect]
     Active Substance: NILOTINIB
     Route: 048
     Dates: start: 20210827

REACTIONS (6)
  - Hepatic infection [Unknown]
  - Pyrexia [Unknown]
  - Cytogenetic analysis abnormal [Unknown]
  - Haemoglobin abnormal [Unknown]
  - Cough [Unknown]
  - Unevaluable event [Unknown]

NARRATIVE: CASE EVENT DATE: 20210916
